FAERS Safety Report 15554893 (Version 1)
Quarter: 2018Q4

REPORT INFORMATION
  Report Type: Spontaneous
  Country: US (occurrence: US)
  Receive Date: 20181026
  Receipt Date: 20181026
  Transmission Date: 20190205
  Serious: No
  Sender: FDA-Public Use
  Company Number: US-B. BRAUN MEDICAL INC.-2058059

PATIENT
  Age: 44 Year
  Sex: Female

DRUGS (2)
  1. INFUVITE ADULT MULTIPLE VITAMINS [Concomitant]
     Active Substance: ALPHA-TOCOPHEROL ACETATE\ASCORBIC ACID\BIOTIN\CHOLECALCIFEROL\CYANOCOBALAMIN\DEXPANTHENOL\FOLIC ACID\NIACINAMIDE\PHYTONADIONE\PYRIDOXINE HYDROCHLORIDE\RIBOFLAVIN 5^-PHOSPHATE SODIUM\THIAMINE HYDROCHLORIDE\VITAMIN A PALMITATE
  2. STERILE WATER [Suspect]
     Active Substance: WATER
     Route: 042
     Dates: start: 20180615, end: 20180615

REACTIONS (1)
  - Chromaturia [None]
